FAERS Safety Report 22384606 (Version 3)
Quarter: 2024Q2

REPORT INFORMATION
  Report Type: Spontaneous
  Country: AU (occurrence: AU)
  Receive Date: 20230530
  Receipt Date: 20240408
  Transmission Date: 20240716
  Serious: Yes (Other)
  Sender: FDA-Public Use
  Company Number: AU-FERRINGPH-2023FE02474

PATIENT

DRUGS (2)
  1. ENDOMETRIN [Suspect]
     Active Substance: PROGESTERONE
     Indication: Product used for unknown indication
     Dosage: 100 MG, TDS
     Route: 065
     Dates: start: 20230503, end: 20230513
  2. CARDIPRIN [ACETYLSALICYLIC ACID] [Concomitant]
     Dosage: 100 MG, DAILY
     Dates: start: 20230418

REACTIONS (3)
  - Hypersensitivity [Recovering/Resolving]
  - Sinus tachycardia [Recovering/Resolving]
  - Vulvovaginal discomfort [Recovering/Resolving]

NARRATIVE: CASE EVENT DATE: 20230512
